FAERS Safety Report 8780153 (Version 1)
Quarter: 2012Q4

REPORT INFORMATION
  Report Type: Spontaneous
  Country: IT (occurrence: None)
  Receive Date: 20120828
  Receipt Date: 20120828
  Transmission Date: 20130627
  Serious: Yes (Other)
  Sender: FDA-Public Use
  Company Number: 218569

PATIENT
  Age: 82 Year
  Sex: Female

DRUGS (3)
  1. INNOHEP (TINZAPARIN SODIUM) [Suspect]
  2. CYCLOPHOSPHAMIDE [Suspect]
  3. DEXAMETHASONE [Suspect]

REACTIONS (7)
  - Deep vein thrombosis [None]
  - Activated partial thromboplastin time abnormal [None]
  - Platelet count decreased [None]
  - Haemodialysis [None]
  - Plasma cell myeloma [None]
  - Renal failure [None]
  - Heparin-induced thrombocytopenia test positive [None]
